FAERS Safety Report 7658970-4 (Version None)
Quarter: 2011Q3

REPORT INFORMATION
  Report Type: 
  Country: None (occurrence: None)
  Receive Date: 20110805
  Receipt Date: 20110728
  Transmission Date: 20111222
  Serious: Yes (Hospitalization)
  Sender: FDA-Public Use
  Company Number: DE-SANOFI-AVENTIS-2011SA048116

PATIENT
  Sex: Female

DRUGS (3)
  1. HYDROXYCHLOROQUINE SULFATE [Suspect]
     Route: 048
     Dates: start: 20110727, end: 20110727
  2. HYDROXYCHLOROQUINE SULFATE [Suspect]
     Indication: BORRELIA INFECTION
     Route: 048
     Dates: start: 20110601, end: 20110601
  3. HYDROXYCHLOROQUINE SULFATE [Suspect]
     Route: 048
     Dates: start: 20110724, end: 20110724

REACTIONS (2)
  - PALPITATIONS [None]
  - PANIC ATTACK [None]
